FAERS Safety Report 9678768 (Version 1)
Quarter: 2013Q4

REPORT INFORMATION
  Report Type: Report from Study
  Country: CZ (occurrence: CZ)
  Receive Date: 20131108
  Receipt Date: 20131108
  Transmission Date: 20140711
  Serious: Yes (Hospitalization)
  Sender: FDA-Public Use
  Company Number: CZ-BRISTOL-MYERS SQUIBB COMPANY-19735455

PATIENT
  Age: 70 Year
  Sex: Female

DRUGS (13)
  1. PACLITAXEL [Suspect]
     Indication: BREAST CANCER METASTATIC
     Dosage: DATE OF MOST RECENT DOSE PRIOR TO SAE: L0/DCT/2013, LAST DOSE: 90MG/M2
     Route: 042
     Dates: start: 20130926
  2. GODASAL [Concomitant]
     Indication: HYPERTENSION
     Route: 048
     Dates: start: 2003
  3. BONVIVA [Concomitant]
     Indication: OSTEOPOROSIS
     Route: 048
     Dates: start: 201103, end: 20131001
  4. LETROX [Concomitant]
     Indication: THYROID DISORDER
     Route: 048
     Dates: start: 1988
  5. ATENOLOL [Concomitant]
     Indication: HYPERTENSION
     Route: 048
     Dates: start: 1998
  6. ACCUZIDE [Concomitant]
     Indication: HYPERTENSION
     Route: 048
     Dates: start: 1998
  7. ATORIS [Concomitant]
     Indication: HYPERLIPIDAEMIA
     Route: 048
     Dates: start: 1998
  8. OXAZEPAM [Concomitant]
     Route: 048
     Dates: start: 1998
  9. DEXAMETHASONE [Concomitant]
     Route: 042
     Dates: start: 20130926
  10. RANITIDINE [Concomitant]
     Route: 042
     Dates: start: 20130926
  11. HYDROCORTISONE [Concomitant]
     Route: 042
     Dates: start: 20131003
  12. KALIUM [Concomitant]
     Route: 042
     Dates: start: 20131024
  13. SALINE [Concomitant]
     Route: 042
     Dates: start: 20131024

REACTIONS (1)
  - Diarrhoea [Not Recovered/Not Resolved]
